FAERS Safety Report 17588168 (Version 1)
Quarter: 2020Q1

REPORT INFORMATION
  Report Type: Spontaneous
  Country: IT (occurrence: IT)
  Receive Date: 20200327
  Receipt Date: 20200327
  Transmission Date: 20200409
  Serious: Yes (Other)
  Sender: FDA-Public Use
  Company Number: IT-ELI_LILLY_AND_COMPANY-IT202001004404

PATIENT
  Age: 37 Year
  Sex: Male
  Weight: 65 kg

DRUGS (2)
  1. CYMBALTA [Suspect]
     Active Substance: DULOXETINE HYDROCHLORIDE
     Dosage: 30 MG, DAILY
     Route: 048
  2. CYMBALTA [Suspect]
     Active Substance: DULOXETINE HYDROCHLORIDE
     Indication: ANXIETY
     Dosage: 60 MG, DAILY
     Route: 048

REACTIONS (6)
  - Tinnitus [Recovering/Resolving]
  - Libido decreased [Recovering/Resolving]
  - Erectile dysfunction [Recovering/Resolving]
  - Arrhythmia [Recovering/Resolving]
  - Anhedonia [Recovering/Resolving]
  - Visual impairment [Recovering/Resolving]
